FAERS Safety Report 7300958-7 (Version None)
Quarter: 2011Q1

REPORT INFORMATION
  Report Type: 
  Country: None (occurrence: None)
  Receive Date: 20110110
  Receipt Date: 20100910
  Transmission Date: 20110831
  Serious: No
  Sender: FDA-Public Use
  Company Number: 2010IP000114

PATIENT
  Age: 31 Year
  Sex: Female

DRUGS (6)
  1. BEPREVE [Suspect]
     Indication: HYPERSENSITIVITY
     Dosage: 1 GTT; BID; OPH
     Route: 047
     Dates: start: 20100816, end: 20100910
  2. NUVARING [Concomitant]
  3. SPIRONOLACTONE [Concomitant]
  4. OMEPRAZOLE [Concomitant]
  5. METFORMIN [Concomitant]
  6. MOBIC [Concomitant]

REACTIONS (2)
  - EYE IRRITATION [None]
  - EYE PAIN [None]
